FAERS Safety Report 7286188-6 (Version None)
Quarter: 2011Q1

REPORT INFORMATION
  Report Type: 
  Country: None (occurrence: None)
  Receive Date: 20110210
  Receipt Date: 20110131
  Transmission Date: 20110831
  Serious: Yes (Other)
  Sender: FDA-Public Use
  Company Number: PHHY2011NL07099

PATIENT
  Sex: Female

DRUGS (2)
  1. SANDOSTATIN LAR [Suspect]
     Dosage: 2X20MG ONCE PER 4 WEEKS
     Dates: start: 20100701
  2. EVEROLIMUS [Suspect]
     Dosage: 2.5 MG, QD
     Dates: start: 20100701

REACTIONS (3)
  - FLUID RETENTION [None]
  - EPILEPSY [None]
  - BLOOD GLUCOSE DECREASED [None]
